FAERS Safety Report 19132221 (Version 2)
Quarter: 2024Q4

REPORT INFORMATION
  Report Type: Report from Study
  Country: US (occurrence: US)
  Receive Date: 20210413
  Receipt Date: 20241007
  Transmission Date: 20250115
  Serious: Yes (Other)
  Sender: INCYTE
  Company Number: US-INCYTE CORPORATION-2021IN002010

PATIENT

DRUGS (3)
  1. JAKAFI [Suspect]
     Active Substance: RUXOLITINIB
     Indication: Polycythaemia vera
     Dosage: 5 MILLIGRAM, BID
     Route: 048
     Dates: start: 20200428
  2. JAKAFI [Suspect]
     Active Substance: RUXOLITINIB
     Dosage: 15 MILLIGRAM, BID
     Route: 048
  3. JAKAFI [Suspect]
     Active Substance: RUXOLITINIB
     Dosage: 2.5 MILLIGRAM, QD
     Route: 048

REACTIONS (16)
  - Cataract [Unknown]
  - Abdominal discomfort [Unknown]
  - Abdominal mass [Unknown]
  - Depression [Unknown]
  - Abdominal distension [Unknown]
  - Gastrointestinal disorder [Unknown]
  - Feeling abnormal [Unknown]
  - Drug intolerance [Unknown]
  - Full blood count abnormal [Unknown]
  - Dysphonia [Unknown]
  - Pruritus [Unknown]
  - Malaise [Unknown]
  - Intentional product use issue [Unknown]
  - Weight increased [Unknown]
  - Dyspnoea [Unknown]
  - Nausea [Unknown]
